FAERS Safety Report 19781348 (Version 1)
Quarter: 2021Q3

REPORT INFORMATION
  Report Type: Spontaneous
  Country: FR (occurrence: FR)
  Receive Date: 20210902
  Receipt Date: 20210902
  Transmission Date: 20211014
  Serious: Yes (Hospitalization)
  Sender: FDA-Public Use
  Company Number: FR-MYLANLABS-2021M1057793

PATIENT
  Age: 59 Year
  Sex: Male
  Weight: 60.4 kg

DRUGS (9)
  1. ACIDE FOLIQUE [Concomitant]
     Active Substance: FOLIC ACID
     Dosage: UNK
  2. CISPLATIN MYLAN [Suspect]
     Active Substance: CISPLATIN
     Indication: LUNG NEOPLASM MALIGNANT
     Dosage: 125 MILLIGRAM, QD
     Route: 042
     Dates: start: 20210225, end: 20210225
  3. KEPPRA [Suspect]
     Active Substance: LEVETIRACETAM
     Indication: MYOCLONUS
     Dosage: 500 MILLIGRAM, QD
     Route: 048
     Dates: start: 20210301, end: 20210302
  4. IZALGI [Suspect]
     Active Substance: ACETAMINOPHEN\OPIUM
     Indication: SCIATICA
     Dosage: 1 DOSAGE FORM, QD
     Route: 048
     Dates: end: 20210302
  5. SIMVASTATIN. [Suspect]
     Active Substance: SIMVASTATIN
     Indication: DYSLIPIDAEMIA
     Dosage: 1 DOSAGE FORM, QD
     Route: 048
     Dates: end: 20210302
  6. CLARADOL CAFEINE [Suspect]
     Active Substance: ACETAMINOPHEN\CAFFEINE
     Indication: SCIATICA
     Dosage: 2 DOSAGE FORM, QD
     Route: 048
     Dates: end: 20210302
  7. ALIMTA [Suspect]
     Active Substance: PEMETREXED DISODIUM
     Indication: LUNG NEOPLASM MALIGNANT
     Dosage: 850 MILLIGRAM, QD
     Route: 042
     Dates: start: 20210225, end: 20210225
  8. BETAHISTINE                        /00141802/ [Concomitant]
     Active Substance: BETAHISTINE
     Dosage: UNK
  9. PRAZEPAM [Concomitant]
     Active Substance: PRAZEPAM
     Dosage: UNK

REACTIONS (1)
  - Lichenoid keratosis [Recovering/Resolving]

NARRATIVE: CASE EVENT DATE: 20210302
